FAERS Safety Report 25884501 (Version 1)
Quarter: 2025Q4

REPORT INFORMATION
  Report Type: Report from Study
  Country: US (occurrence: US)
  Receive Date: 20251006
  Receipt Date: 20251006
  Transmission Date: 20260118
  Serious: Yes (Hospitalization, Other)
  Sender: TEVA
  Company Number: US-TEVA-VS-3378323

PATIENT
  Age: 71 Year
  Sex: Female

DRUGS (6)
  1. AUSTEDO XR [Suspect]
     Active Substance: DEUTETRABENAZINE
     Indication: Movement disorder
     Route: 048
     Dates: start: 202501, end: 202508
  2. AUSTEDO XR [Suspect]
     Active Substance: DEUTETRABENAZINE
     Indication: Movement disorder
     Route: 048
     Dates: start: 20250211, end: 2025
  3. AUSTEDO XR [Suspect]
     Active Substance: DEUTETRABENAZINE
     Indication: Movement disorder
     Dosage: PER PATIENT 1 30 MG TABLET AND HALF OF 24 MG TABLET
     Route: 048
     Dates: start: 2025
  4. AUSTEDO XR [Suspect]
     Active Substance: DEUTETRABENAZINE
     Indication: Movement disorder
     Dosage: CYCLE
     Route: 048
     Dates: start: 2025, end: 2025
  5. AUSTEDO XR [Suspect]
     Active Substance: DEUTETRABENAZINE
     Indication: Movement disorder
     Dosage: CYCLE
     Route: 048
     Dates: start: 2025, end: 2025
  6. AUSTEDO XR [Suspect]
     Active Substance: DEUTETRABENAZINE
     Indication: Movement disorder
     Route: 048
     Dates: start: 20250912

REACTIONS (10)
  - Cardiac operation [Unknown]
  - Drug dose titration not performed [Unknown]
  - Product use in unapproved indication [Unknown]
  - Product use issue [Unknown]
  - Rhinorrhoea [Unknown]
  - Wrong technique in product usage process [Unknown]
  - Incorrect dose administered [Unknown]
  - Product dispensing error [Unknown]
  - Product prescribing error [Unknown]
  - Drug ineffective [Unknown]

NARRATIVE: CASE EVENT DATE: 20250101
